FAERS Safety Report 4844317-5 (Version None)
Quarter: 2005Q4

REPORT INFORMATION
  Report Type: 
  Country: None (occurrence: None)
  Receive Date: 20051202
  Receipt Date: 20051004
  Transmission Date: 20060501
  Serious: Yes (Other)
  Sender: FDA-Public Use
  Company Number: US-MERCK-0510USA03151

PATIENT
  Age: 63 Year
  Sex: Male
  Weight: 102 kg

DRUGS (8)
  1. VIOXX [Suspect]
     Indication: ARTHRITIS
     Route: 048
     Dates: start: 20010101, end: 20010101
  2. VIOXX [Suspect]
     Route: 048
     Dates: start: 20010101, end: 20040501
  3. PRILOSEC [Concomitant]
     Route: 065
  4. ASPIRIN [Concomitant]
     Route: 065
  5. HYDROXYZINE HYDROCHLORIDE [Concomitant]
     Route: 065
  6. TETRACYCLINE [Concomitant]
     Route: 065
  7. [THERAPY UNSPECIFIED] [Concomitant]
     Route: 065
  8. CYCLOBENZAPRINE HYDROCHLORIDE [Concomitant]
     Route: 065

REACTIONS (1)
  - CEREBROVASCULAR ACCIDENT [None]
